FAERS Safety Report 9750191 (Version 1)
Quarter: 2013Q4

REPORT INFORMATION
  Report Type: Spontaneous
  Country: US (occurrence: US)
  Receive Date: 20131212
  Receipt Date: 20131212
  Transmission Date: 20140711
  Serious: Yes (Disabling)
  Sender: FDA-Public Use
  Company Number: US-GLAXOSMITHKLINE-A1052483A

PATIENT
  Age: 66 Year
  Sex: Male

DRUGS (7)
  1. VOTRIENT [Suspect]
     Indication: RENAL CELL CARCINOMA
     Dosage: 800MG PER DAY
     Dates: start: 20131018
  2. CANDESARTAN CILEXETIL + HYDROCHLOROTHIAZIDE [Concomitant]
  3. FINASTERIDE [Concomitant]
  4. LORATADINE [Concomitant]
  5. COMPAZINE [Concomitant]
  6. NORCO [Concomitant]
  7. AMBIEN [Concomitant]

REACTIONS (3)
  - Bursitis [Recovering/Resolving]
  - Ecchymosis [Recovering/Resolving]
  - Musculoskeletal pain [Recovering/Resolving]
